FAERS Safety Report 5200850-8 (Version None)
Quarter: 2007Q1

REPORT INFORMATION
  Report Type: 
  Country: None (occurrence: None)
  Receive Date: 20070103
  Receipt Date: 20061219
  Transmission Date: 20070707
  Serious: Yes (Other)
  Sender: FDA-Public Use
  Company Number: B0451805A

PATIENT
  Age: 39 Year
  Sex: Female

DRUGS (6)
  1. PAXIL [Suspect]
     Indication: MAJOR DEPRESSION
  2. OPIPRAMOL (OPIPRAMOL) [Suspect]
  3. AMITRIPTYLINE HCL [Suspect]
     Indication: MIGRAINE
  4. TRAZODONE HCL [Suspect]
     Indication: MIGRAINE
  5. METHADONE HYDROCHLORIDE [Concomitant]
  6. PRAZEPAM [Concomitant]

REACTIONS (12)
  - BIPOLAR I DISORDER [None]
  - DYSPHORIA [None]
  - FLIGHT OF IDEAS [None]
  - FOOD CRAVING [None]
  - HEADACHE [None]
  - HYPERACUSIS [None]
  - IRRITABILITY [None]
  - PHOTOPHOBIA [None]
  - SEROTONIN SYNDROME [None]
  - SPEECH DISORDER [None]
  - TEMPERATURE INTOLERANCE [None]
  - THINKING ABNORMAL [None]
